FAERS Safety Report 9474022 (Version 2)
Quarter: 2013Q4

REPORT INFORMATION
  Report Type: Spontaneous
  Country: US (occurrence: US)
  Receive Date: 20130823
  Receipt Date: 20131002
  Transmission Date: 20140711
  Serious: Yes (Hospitalization)
  Sender: FDA-Public Use
  Company Number: US-SANOFI-AVENTIS-2013SA083505

PATIENT
  Age: 56 Year
  Sex: Male
  Weight: 143.78 kg

DRUGS (1)
  1. LANTUS [Suspect]
     Indication: TYPE 2 DIABETES MELLITUS
     Route: 051
     Dates: start: 2008

REACTIONS (4)
  - Cerebrovascular accident [Unknown]
  - Visual impairment [Unknown]
  - Wheelchair user [Unknown]
  - Motor dysfunction [Unknown]
